FAERS Safety Report 20794841 (Version 1)
Quarter: 2022Q2

REPORT INFORMATION
  Report Type: Spontaneous
  Country: US (occurrence: None)
  Receive Date: 20220505
  Receipt Date: 20220505
  Transmission Date: 20220721
  Serious: Yes (Other)
  Sender: FDA-Public Use
  Company Number: None

PATIENT
  Age: 51 Year
  Sex: Male

DRUGS (1)
  1. CAPECITABINE [Suspect]
     Active Substance: CAPECITABINE
     Indication: Colorectal cancer
     Dosage: OTHER QUANTITY : 1000 MG AM AND 150;?FREQUENCY : TWICE A DAY;?1100 MG IN MORNING AND 1500 IN THE EVE
     Route: 048
     Dates: start: 202112

REACTIONS (4)
  - Dry eye [None]
  - Neuropathy peripheral [None]
  - Palmar-plantar erythrodysaesthesia syndrome [None]
  - Malignant neoplasm progression [None]

NARRATIVE: CASE EVENT DATE: 20220401
